FAERS Safety Report 8610241-5 (Version None)
Quarter: 2012Q3

REPORT INFORMATION
  Report Type: 
  Country: None (occurrence: None)
  Receive Date: 20120810
  Receipt Date: 20120810
  Transmission Date: 20120928
  Serious: Yes (Disabling)
  Sender: FDA-Public Use
  Company Number: None

PATIENT
  Age: 61 Year
  Sex: Female
  Weight: 81.6475 kg

DRUGS (1)
  1. SIMVASTATIN [Suspect]
     Indication: BLOOD CHOLESTEROL INCREASED
     Dosage: 1 1/DAY PO
     Route: 048
     Dates: start: 20110101, end: 20120612

REACTIONS (3)
  - FATIGUE [None]
  - MYALGIA [None]
  - MUSCULAR WEAKNESS [None]
